FAERS Safety Report 9716293 (Version 2)
Quarter: 2013Q4

REPORT INFORMATION
  Report Type: Report from Study
  Country: JP (occurrence: JP)
  Receive Date: 20131127
  Receipt Date: 20131127
  Transmission Date: 20140711
  Serious: Yes (Hospitalization)
  Sender: FDA-Public Use
  Company Number: JP-US-EMD SERONO, INC.-310001M08JPN

PATIENT
  Age: 36 Year
  Sex: Male
  Weight: 80 kg

DRUGS (4)
  1. GONAL-F [Suspect]
     Indication: HYPOGONADISM MALE
     Route: 058
     Dates: start: 20080814, end: 20081002
  2. GONAL-F [Suspect]
     Route: 058
  3. GONAL-F [Suspect]
     Route: 058
  4. CHORIONIC GONADOTROPIN FOR INJECTION [Suspect]
     Indication: HYPOGONADISM MALE
     Route: 058
     Dates: start: 20080605

REACTIONS (1)
  - Rhabdomyolysis [Recovered/Resolved]
